FAERS Safety Report 9101320 (Version 1)
Quarter: 2013Q1

REPORT INFORMATION
  Report Type: Spontaneous
  Country: US (occurrence: US)
  Receive Date: 20130215
  Receipt Date: 20130215
  Transmission Date: 20140127
  Serious: No
  Sender: FDA-Public Use
  Company Number: US-BAYER-2013-004977

PATIENT
  Age: 45 Year
  Sex: Female

DRUGS (9)
  1. ALEVE [Suspect]
     Indication: NASOPHARYNGITIS
     Dosage: 5 MG, UNK
     Route: 048
  2. BAYER GENUINE ASPIRIN ORIGINAL STRENGTH [Suspect]
     Indication: NASOPHARYNGITIS
  3. IBUPROFEN [Suspect]
     Indication: NASOPHARYNGITIS
     Dosage: UNK
  4. ESCITALOPRAM [Suspect]
     Indication: PREMENSTRUAL SYNDROME
     Dosage: 5 MG, UNK
     Route: 048
     Dates: start: 201210
  5. NYQUIL [Suspect]
     Indication: NASOPHARYNGITIS
  6. DAYQUIL [DEXTROMET HBR,GUAIF,PARACET,PSEUDOEPH HCL] [Suspect]
     Indication: NASOPHARYNGITIS
     Dosage: UNK
  7. BC [Suspect]
     Indication: NASOPHARYNGITIS
     Dosage: UNK
  8. ZANTAC [Concomitant]
     Dosage: UNK
  9. NEXIUM [Concomitant]

REACTIONS (2)
  - Off label use [Not Recovered/Not Resolved]
  - Menorrhagia [Not Recovered/Not Resolved]
